FAERS Safety Report 6465336-1 (Version None)
Quarter: 2009Q4

REPORT INFORMATION
  Report Type: 
  Country: None (occurrence: None)
  Receive Date: 20091201
  Receipt Date: 20091117
  Transmission Date: 20100525
  Serious: Yes (Other)
  Sender: FDA-Public Use
  Company Number: DE-MYLANLABS-2009S1019986

PATIENT
  Age: 56 Year
  Sex: Female

DRUGS (1)
  1. TAMOXIMERCK [Suspect]
     Indication: BREAST CANCER
     Dates: start: 20070101

REACTIONS (5)
  - BONE PAIN [None]
  - HOT FLUSH [None]
  - MUCOSAL DRYNESS [None]
  - MUSCLE SPASMS [None]
  - VISUAL IMPAIRMENT [None]
